FAERS Safety Report 5978486-0 (Version None)
Quarter: 2008Q4

REPORT INFORMATION
  Report Type: 
  Country: None (occurrence: None)
  Receive Date: 20081204
  Receipt Date: 20081126
  Transmission Date: 20090506
  Serious: Yes (Hospitalization, Disabling)
  Sender: FDA-Public Use
  Company Number: DE-ABBOTT-08P-062-0490325-00

PATIENT
  Sex: Female

DRUGS (4)
  1. HUMIRA [Suspect]
     Indication: CROHN'S DISEASE
     Route: 058
     Dates: start: 20070110, end: 20080804
  2. HUMIRA [Suspect]
     Route: 058
     Dates: start: 20081107
  3. THYROID HORMONES [Concomitant]
     Indication: HYPOTHYROIDISM
     Route: 050
  4. VALORON N [Concomitant]
     Indication: PAIN
     Route: 065

REACTIONS (5)
  - ABSCESS [None]
  - COLOSTOMY [None]
  - INTESTINAL RESECTION [None]
  - POST PROCEDURAL FISTULA [None]
  - POSTOPERATIVE ABSCESS [None]
